FAERS Safety Report 10154301 (Version 1)
Quarter: 2014Q2

REPORT INFORMATION
  Report Type: Spontaneous
  Country: US (occurrence: None)
  Receive Date: 20140505
  Receipt Date: 20140505
  Transmission Date: 20141212
  Serious: No
  Sender: FDA-Public Use
  Company Number: None

PATIENT
  Age: 11 Year
  Sex: Female
  Weight: 100 kg

DRUGS (1)
  1. METHYLPHENIDATE HCL [Suspect]
     Indication: ATTENTION DEFICIT/HYPERACTIVITY DISORDER
     Dates: start: 20130423, end: 20140503

REACTIONS (7)
  - Headache [None]
  - Dizziness [None]
  - Anxiety [None]
  - Depression [None]
  - Drug ineffective [None]
  - Asthenia [None]
  - Product substitution issue [None]
